FAERS Safety Report 7302643-4 (Version None)
Quarter: 2011Q1

REPORT INFORMATION
  Report Type: 
  Country: None (occurrence: None)
  Receive Date: 20110218
  Receipt Date: 20110215
  Transmission Date: 20110831
  Serious: Yes (Other)
  Sender: FDA-Public Use
  Company Number: RU-PFIZER INC-2011017077

PATIENT
  Age: 35 Month
  Sex: Male

DRUGS (5)
  1. FORTUM [Concomitant]
  2. TAVANIC [Concomitant]
  3. BISEPTOL [Concomitant]
     Route: 042
  4. VFEND [Suspect]
     Indication: ASPERGILLOSIS
     Dosage: 7 MG/KG, 2X/DAY
     Route: 042
     Dates: start: 20110112, end: 20110112
  5. VFEND [Suspect]
     Dosage: 3 MG/KG, 2X/DAY
     Route: 042
     Dates: start: 20110113

REACTIONS (4)
  - HEADACHE [None]
  - ANXIETY [None]
  - PARAESTHESIA [None]
  - CLONUS [None]
